FAERS Safety Report 22161178 (Version 1)
Quarter: 2023Q1

REPORT INFORMATION
  Report Type: Spontaneous
  Country: JP (occurrence: JP)
  Receive Date: 20230331
  Receipt Date: 20230331
  Transmission Date: 20230417
  Serious: Yes (Other)
  Sender: FDA-Public Use
  Company Number: JP-ONO-2023JP007759

PATIENT
  Age: 78 Year
  Sex: Female
  Weight: 53.2 kg

DRUGS (6)
  1. OPDIVO [Suspect]
     Active Substance: NIVOLUMAB
     Indication: Malignant melanoma
     Route: 041
     Dates: start: 20210826
  2. LOXOPROFEN SODIUM [Suspect]
     Active Substance: LOXOPROFEN SODIUM
     Indication: Product used for unknown indication
     Dosage: UNK MG
     Route: 048
     Dates: start: 20220317
  3. REBAMIPIDE [Concomitant]
     Active Substance: REBAMIPIDE
     Dosage: UNK MG
     Route: 048
     Dates: start: 20220317
  4. SENNOSIDES A AND B [Concomitant]
     Active Substance: SENNOSIDES A AND B
     Indication: Product used for unknown indication
     Dosage: UNK MG
     Route: 048
     Dates: start: 20221024
  5. CLOBETASOL [Concomitant]
     Active Substance: CLOBETASOL
     Indication: Product used for unknown indication
     Dosage: UNK G
     Route: 062
     Dates: start: 20220317
  6. GLYCOSAMINOGLYCANS [Concomitant]
     Active Substance: GLYCOSAMINOGLYCANS
     Indication: Product used for unknown indication
     Dosage: UNK
     Route: 062
     Dates: start: 20210723

REACTIONS (4)
  - Pulmonary toxicity [Not Recovered/Not Resolved]
  - Interstitial lung disease [Unknown]
  - Lung opacity [Unknown]
  - KL-6 increased [Unknown]

NARRATIVE: CASE EVENT DATE: 20221124
